FAERS Safety Report 8664534 (Version 2)
Quarter: 2013Q4

REPORT INFORMATION
  Report Type: Spontaneous
  Country: JP (occurrence: JP)
  Receive Date: 20120713
  Receipt Date: 20131107
  Transmission Date: 20140711
  Serious: Yes (Other)
  Sender: FDA-Public Use
  Company Number: JP-009507513-1207JPN003343

PATIENT
  Sex: 0

DRUGS (1)
  1. PEGINTRON [Suspect]
     Dosage: DAILY DOSAGE UNKNOWN
     Route: 058

REACTIONS (1)
  - Appendicitis [Unknown]
